FAERS Safety Report 8065843-4 (Version None)
Quarter: 2012Q1

REPORT INFORMATION
  Report Type: 
  Country: None (occurrence: None)
  Receive Date: 20120117
  Receipt Date: 20120102
  Transmission Date: 20120608
  Serious: Yes (Hospitalization)
  Sender: FDA-Public Use
  Company Number: 2012CP000004

PATIENT
  Age: 4 Year
  Sex: Male

DRUGS (4)
  1. ACETAMINOPHEN [Suspect]
     Indication: ACUTE LYMPHOCYTIC LEUKAEMIA
     Dosage: IV
     Route: 042
     Dates: start: 20111201
  2. METHOTREXATE SODIUM [Suspect]
     Dosage: INTH
     Route: 037
     Dates: start: 20111201
  3. PROPOFOL [Suspect]
     Indication: ANAESTHESIA PROCEDURE
     Dosage: 100 MG; IV
     Route: 042
     Dates: start: 20111201
  4. SUFENTANIL CITRATE [Suspect]
     Indication: ANAESTHESIA PROCEDURE
     Dosage: 3 UGL; IV
     Route: 042
     Dates: start: 20111201

REACTIONS (1)
  - ATRIOVENTRICULAR BLOCK SECOND DEGREE [None]
